FAERS Safety Report 6787921-X (Version None)
Quarter: 2010Q2

REPORT INFORMATION
  Report Type: 
  Country: None (occurrence: None)
  Receive Date: 20100623
  Receipt Date: 20071118
  Transmission Date: 20101027
  Serious: No
  Sender: FDA-Public Use
  Company Number: US-PFIZER INC-2007096747

PATIENT
  Sex: Female

DRUGS (1)
  1. DEPO-PROVERA SUSPENSION/INJ [Suspect]
     Indication: CONTRACEPTION
     Dates: end: 20070801

REACTIONS (4)
  - MIGRAINE [None]
  - MUSCLE SPASMS [None]
  - PAIN [None]
  - WITHDRAWAL SYNDROME [None]
